FAERS Safety Report 19072195 (Version 1)
Quarter: 2021Q1

REPORT INFORMATION
  Report Type: Spontaneous
  Country: GE (occurrence: GE)
  Receive Date: 20210330
  Receipt Date: 20210330
  Transmission Date: 20210420
  Serious: Yes (Other)
  Sender: FDA-Public Use
  Company Number: GE-PFIZER INC-2021305385

PATIENT
  Age: 49 Year
  Sex: Female

DRUGS (1)
  1. METHYLPREDNISOLONE. [Suspect]
     Active Substance: METHYLPREDNISOLONE
     Indication: BENIGN FAMILIAL PEMPHIGUS
     Dosage: 48 MG FOR 3 YEARS

REACTIONS (1)
  - Rosacea [Recovering/Resolving]
